FAERS Safety Report 8840020 (Version 3)
Quarter: 2013Q1

REPORT INFORMATION
  Report Type: Spontaneous
  Country: US (occurrence: US)
  Receive Date: 20121015
  Receipt Date: 20130311
  Transmission Date: 20140127
  Serious: Yes (Hospitalization, Other)
  Sender: FDA-Public Use
  Company Number: US-PFIZER INC-2012177567

PATIENT
  Age: 77 Year
  Sex: Female
  Weight: 80.7 kg

DRUGS (4)
  1. INLYTA [Suspect]
     Indication: RENAL CANCER
     Dosage: 5 MG, 2X/DAY
  2. INLYTA [Suspect]
     Dosage: 6 MG, UNK
  3. INLYTA [Suspect]
     Dosage: ONE 5 MG TABLET WITH TWO 1MG TABLETS, TWICE DAILY
     Route: 048
     Dates: start: 20120626
  4. INLYTA [Suspect]
     Dosage: UNK

REACTIONS (7)
  - Cerebrovascular accident [Unknown]
  - Second primary malignancy [Unknown]
  - Neoplasm malignant [Unknown]
  - Weight decreased [Unknown]
  - Alopecia [Unknown]
  - Diarrhoea [Unknown]
  - Constipation [Unknown]
